FAERS Safety Report 14579292 (Version 2)
Quarter: 2018Q1

REPORT INFORMATION
  Report Type: Spontaneous
  Country: US (occurrence: US)
  Receive Date: 20180227
  Receipt Date: 20180308
  Transmission Date: 20180509
  Serious: No
  Sender: FDA-Public Use
  Company Number: US-PFIZER INC-2018083434

PATIENT
  Age: 69 Year
  Sex: Male

DRUGS (1)
  1. NITROGLYCERIN. [Suspect]
     Active Substance: NITROGLYCERIN
     Indication: CARDIAC DISORDER
     Dosage: UNK (PER HOUR)
     Route: 062

REACTIONS (2)
  - Cardiac disorder [Recovered/Resolved]
  - Condition aggravated [Recovered/Resolved]
